FAERS Safety Report 6254544-0 (Version None)
Quarter: 2009Q3

REPORT INFORMATION
  Report Type: 
  Country: None (occurrence: None)
  Receive Date: 20090702
  Receipt Date: 20090619
  Transmission Date: 20100115
  Serious: Yes (Other)
  Sender: FDA-Public Use
  Company Number: US-PFIZER INC-2008093289

PATIENT
  Sex: Female

DRUGS (2)
  1. CHANTIX [Suspect]
     Dosage: 1 MG, 2X/DAY
     Dates: start: 20070101
  2. ALL OTHER THERAPEUTIC PRODUCTS [Interacting]

REACTIONS (8)
  - AGITATION [None]
  - DEPRESSION [None]
  - DRUG INTERACTION [None]
  - FOOT OPERATION [None]
  - HOMICIDAL IDEATION [None]
  - MEMORY IMPAIRMENT [None]
  - SUICIDAL IDEATION [None]
  - SURGERY [None]
